FAERS Safety Report 10418820 (Version 1)
Quarter: 2014Q2

REPORT INFORMATION
  Report Type: Report from Study
  Country: US (occurrence: None)
  Receive Date: 20140627
  Receipt Date: 20140627
  Transmission Date: 20141212
  Serious: No
  Sender: FDA-Public Use
  Company Number: CABO-14004251

PATIENT
  Age: 56 Year
  Sex: Female

DRUGS (8)
  1. COMETRIQ (CABOZANTINIB) CAPSULE [Suspect]
     Indication: MALIGNANT PERITONEAL NEOPLASM
     Route: 048
     Dates: start: 20140402
  2. XELODA (CAPECITABINE) [Concomitant]
  3. ENOXAPARIN (ENOXAPARIN) [Concomitant]
  4. THALOMID (THALIDOMIDE) [Concomitant]
  5. ASPIRIN (ACETYLSALICYLIC ACID) [Concomitant]
  6. VITAMIN D2 (ERGOCALCIFEROL) [Concomitant]
  7. DIOVAN (VALSARTAN) [Concomitant]
  8. SERTRALINE (SERTRALINE) [Concomitant]

REACTIONS (2)
  - Dry mouth [None]
  - Off label use [None]
